FAERS Safety Report 7576925-5 (Version None)
Quarter: 2011Q2

REPORT INFORMATION
  Report Type: 
  Country: None (occurrence: None)
  Receive Date: 20110628
  Receipt Date: 20110624
  Transmission Date: 20111010
  Serious: No
  Sender: FDA-Public Use
  Company Number: US-PFIZER INC-2011141320

PATIENT
  Sex: Male
  Weight: 69.841 kg

DRUGS (1)
  1. ARTHROTEC [Suspect]
     Indication: ARTHRITIS
     Dosage: UNK
     Dates: start: 20110623

REACTIONS (2)
  - ERYTHEMA [None]
  - FLUSHING [None]
